FAERS Safety Report 25081602 (Version 1)
Quarter: 2025Q1

REPORT INFORMATION
  Report Type: Spontaneous
  Country: AU (occurrence: AU)
  Receive Date: 20250316
  Receipt Date: 20250316
  Transmission Date: 20250408
  Serious: Yes (Other)
  Sender: SANDOZ
  Company Number: AU-SANDOZ-SDZ2025AU015796

PATIENT
  Sex: Female

DRUGS (1)
  1. DOXYCYCLINE [Suspect]
     Active Substance: DOXYCYCLINE
     Indication: Lower respiratory tract infection
     Dosage: 100 MG, QD
     Route: 065

REACTIONS (3)
  - Mania [Recovered/Resolved]
  - Neuropsychological symptoms [Recovered/Resolved]
  - Substance-induced psychotic disorder [Recovered/Resolved]
